FAERS Safety Report 9703874 (Version 1)
Quarter: 2013Q4

REPORT INFORMATION
  Report Type: Spontaneous
  Country: US (occurrence: None)
  Receive Date: 20131121
  Receipt Date: 20131121
  Transmission Date: 20140711
  Serious: No
  Sender: FDA-Public Use
  Company Number: None

PATIENT
  Age: 49 Year
  Sex: Female

DRUGS (1)
  1. MONTELUKAST 10 MG SINGULAR [Suspect]
     Indication: SINUS DISORDER
     Dosage: 1 ONCE DAILY TAKEN BY MOUTH
     Route: 048
     Dates: start: 20131115, end: 20131118

REACTIONS (3)
  - Depression [None]
  - Anxiety [None]
  - Agitation [None]
